FAERS Safety Report 7569720-4 (Version None)
Quarter: 2011Q2

REPORT INFORMATION
  Report Type: 
  Country: None (occurrence: None)
  Receive Date: 20110624
  Receipt Date: 20110622
  Transmission Date: 20111010
  Serious: No
  Sender: FDA-Public Use
  Company Number: US-PFIZER INC-2011139637

PATIENT
  Sex: Female
  Weight: 59 kg

DRUGS (4)
  1. ATIVAN [Concomitant]
     Indication: ANXIETY
     Dosage: 1 MG, UNK
     Route: 048
  2. CHANTIX [Suspect]
     Indication: SMOKING CESSATION THERAPY
     Dosage: UNK
     Route: 048
  3. SYNTHROID [Concomitant]
     Indication: THYROID CANCER
     Dosage: 0.5 MG, DAILY
     Route: 048
  4. ATIVAN [Concomitant]
     Dosage: UNK
     Route: 048

REACTIONS (1)
  - AGITATION [None]
